FAERS Safety Report 16589082 (Version 3)
Quarter: 2019Q3

REPORT INFORMATION
  Report Type: Spontaneous
  Country: US (occurrence: US)
  Receive Date: 20190718
  Receipt Date: 20190916
  Transmission Date: 20191004
  Serious: No
  Sender: FDA-Public Use
  Company Number: US-ASTRAZENECA-2019SE98277

PATIENT
  Age: 20215 Day
  Sex: Female
  Weight: 104.3 kg

DRUGS (1)
  1. BYDUREON BCISE [Suspect]
     Active Substance: EXENATIDE
     Indication: TYPE 2 DIABETES MELLITUS
     Dosage: UNKNOWN,ONCE A WEEK
     Route: 058
     Dates: start: 20190707

REACTIONS (5)
  - Injection site erythema [Unknown]
  - Device issue [Unknown]
  - Blood glucose increased [Unknown]
  - Injection site extravasation [Unknown]
  - Incorrect dose administered [Unknown]

NARRATIVE: CASE EVENT DATE: 20190707
